FAERS Safety Report 6049402-0 (Version None)
Quarter: 2009Q1

REPORT INFORMATION
  Report Type: 
  Country: None (occurrence: None)
  Receive Date: 20090123
  Receipt Date: 20090112
  Transmission Date: 20090719
  Serious: Yes (Other)
  Sender: FDA-Public Use
  Company Number: FR-GENENTECH-275760

PATIENT
  Age: 65 Year
  Sex: Male

DRUGS (2)
  1. MABTHERA [Suspect]
     Indication: LYMPHOMA
     Dosage: UNK
     Route: 042
     Dates: end: 20081212
  2. CHEMOTHERAPY NOS [Concomitant]
     Indication: LYMPHOMA

REACTIONS (2)
  - BLINDNESS TRANSIENT [None]
  - EPILEPSY [None]
